FAERS Safety Report 10281233 (Version 3)
Quarter: 2014Q1

REPORT INFORMATION
  Report Type: Spontaneous
  Country: US (occurrence: None)
  Receive Date: 20120703
  Receipt Date: 20130524
  Transmission Date: 20141002
  Serious: No
  Sender: FDA-Public Use
  Company Number: PHEH2012US001170

PATIENT
  Age: 39 Year
  Sex: Female

DRUGS (4)
  1. GILENYA [Suspect]
     Indication: RELAPSING-REMITTING MULTIPLE SCLEROSIS
     Route: 048
     Dates: start: 20120106
  2. PROPRANOLOL (PROPRANOLOL) [Concomitant]
  3. OXYBUTYNIN (OXYBUTYNIN) [Concomitant]
  4. LITHOBID (LITHIUM CARBONATE) [Concomitant]

REACTIONS (3)
  - Headache [None]
  - Fatigue [None]
  - Tremor [None]
